FAERS Safety Report 5007086-4 (Version None)
Quarter: 2006Q2

REPORT INFORMATION
  Report Type: 
  Country: None (occurrence: None)
  Receive Date: 20060517
  Receipt Date: 20060505
  Transmission Date: 20061013
  Serious: Yes (Other)
  Sender: FDA-Public Use
  Company Number: 2006061004

PATIENT
  Age: 2 Year
  Sex: Male

DRUGS (1)
  1. ZYRTEC [Suspect]
     Indication: NASAL CONGESTION
     Dosage: 5 MG (5 MG, 1 IN 1 D), ORAL
     Route: 048

REACTIONS (4)
  - ANAEMIA [None]
  - EAR INFECTION [None]
  - LYMPHADENOPATHY [None]
  - RED BLOOD CELL SEDIMENTATION RATE INCREASED [None]
